FAERS Safety Report 12143657 (Version 1)
Quarter: 2016Q1

REPORT INFORMATION
  Report Type: Spontaneous
  Country: US (occurrence: US)
  Receive Date: 20160304
  Receipt Date: 20160304
  Transmission Date: 20160526
  Serious: No
  Sender: FDA-Public Use
  Company Number: US-JNJFOC-20160119063

PATIENT
  Age: 73 Year
  Sex: Male
  Weight: 83.46 kg

DRUGS (3)
  1. MOEXIPRIL [Concomitant]
     Active Substance: MOEXIPRIL HYDROCHLORIDE
     Indication: HYPERTENSION
     Dosage: 1/2 TABLET FOR 10 YEARS
     Route: 065
  2. ZYRTEC [Suspect]
     Active Substance: CETIRIZINE HYDROCHLORIDE
     Indication: HYPERSENSITIVITY
     Dosage: HAS BEEN USING THE ZYRTEC FOR ABOUT 4 TO 5 DAYS FOR ABOUT A MONTH
     Route: 048
  3. ZYRTEC [Suspect]
     Active Substance: CETIRIZINE HYDROCHLORIDE
     Route: 048

REACTIONS (3)
  - Blood pressure increased [Recovering/Resolving]
  - Expired product administered [Recovering/Resolving]
  - Wrong patient received medication [Recovering/Resolving]

NARRATIVE: CASE EVENT DATE: 20160122
